FAERS Safety Report 5832596-7 (Version None)
Quarter: 2008Q3

REPORT INFORMATION
  Report Type: 
  Country: None (occurrence: None)
  Receive Date: 20080804
  Receipt Date: 20080724
  Transmission Date: 20090109
  Serious: Yes (Hospitalization, Other)
  Sender: FDA-Public Use
  Company Number: PHHY2008BR15031

PATIENT
  Age: 51 Year
  Sex: Female
  Weight: 70 kg

DRUGS (1)
  1. TRILEPTAL [Suspect]
     Indication: CONVULSION
     Dosage: 3 TABLETS DAILY (6H, 14H AND AT 22H)
     Route: 048
     Dates: start: 20010101

REACTIONS (4)
  - CONVULSION [None]
  - FALL [None]
  - HEAD INJURY [None]
  - SYNCOPE [None]
